FAERS Safety Report 4783669-1 (Version None)
Quarter: 2005Q3

REPORT INFORMATION
  Report Type: 
  Country: None (occurrence: None)
  Receive Date: 20050928
  Receipt Date: 20050915
  Transmission Date: 20060218
  Serious: Yes (Death, Other)
  Sender: FDA-Public Use
  Company Number: 2005104273

PATIENT
  Age: 81 Year
  Sex: Female

DRUGS (7)
  1. FLUCONAZOLE [Suspect]
     Indication: ILL-DEFINED DISORDER
     Dosage: 100 MG (50 MG, 2 IN 1 D), ORAL
     Route: 048
     Dates: start: 20050515, end: 20050619
  2. ISONIAZID [Suspect]
     Indication: MENINGITIS TUBERCULOUS
     Dosage: 4 DOSE FORMS (60 MG, INTERVAL:  EVERY DAY), ORAL
     Route: 048
     Dates: start: 20050425, end: 20050615
  3. PYRAZINAMIDE [Suspect]
     Indication: MENINGITIS TUBERCULOUS
     Dosage: 4 DOSE FORMS (300 MG, INTERVAL  EVERY DAY), ORAL
     Route: 048
     Dates: start: 20050425, end: 20050615
  4. RIFAMPICIN [Suspect]
     Indication: MENINGITIS TUBERCULOUS
     Dosage: 4 DOSE FORMS:  120 MG, INTERVAL: EVERY DAY), ORAL
     Route: 048
     Dates: start: 20050425, end: 20050615
  5. GELOX (ALUMINIUM HYDROXIDE, ALUMINIUM SILICATE, MAGNESIUM HYDROXIDE) [Suspect]
     Indication: ILL-DEFINED DISORDER
     Dosage: ORAL
     Route: 048
     Dates: start: 20050515, end: 20050619
  6. VOGALENE METOPIMAZINE) [Suspect]
     Indication: ILL-DEFINED DISORDER
     Dosage: 7.5 MG, ORAL
     Route: 048
     Dates: start: 20050515, end: 20050619
  7. VITAMIN B1 AND B6 (PYRIDOXINE, THIAMINE) [Concomitant]

REACTIONS (5)
  - COAGULATION FACTOR V LEVEL DECREASED [None]
  - CYTOLYTIC HEPATITIS [None]
  - DEPRESSED LEVEL OF CONSCIOUSNESS [None]
  - ENCEPHALOPATHY [None]
  - NAUSEA [None]
